FAERS Safety Report 16691330 (Version 2)
Quarter: 2025Q4

REPORT INFORMATION
  Report Type: Spontaneous
  Country: EU (occurrence: EU)
  Receive Date: 20190812
  Receipt Date: 20251003
  Transmission Date: 20260118
  Serious: Yes (Other)
  Sender: AUROBINDO
  Company Number: EU-AUROBINDO-AUR-APL-2019-052537

PATIENT
  Sex: Male
  Weight: 105 kg

DRUGS (5)
  1. METFORMIN HYDROCHLORIDE [Suspect]
     Active Substance: METFORMIN HYDROCHLORIDE
     Indication: Type 2 diabetes mellitus
     Dosage: 2 GRAM
     Route: 048
     Dates: start: 2016
  2. ATORVASTATIN [Suspect]
     Active Substance: ATORVASTATIN
     Indication: Disease risk factor
     Dosage: 40 MILLIGRAM
     Route: 065
  3. VILDAGLIPTIN [Concomitant]
     Active Substance: VILDAGLIPTIN
     Indication: Product used for unknown indication
     Dosage: UNK
     Route: 065
  4. FENOFIBRATE [Concomitant]
     Active Substance: FENOFIBRATE
     Indication: Disease risk factor
     Dosage: UNK
     Route: 065
  5. DULAGLUTIDE [Concomitant]
     Active Substance: DULAGLUTIDE
     Indication: Type 2 diabetes mellitus
     Dosage: ONCE A WEEK
     Route: 065

REACTIONS (4)
  - Diabetes mellitus inadequate control [Recovered/Resolved]
  - Glycosylated haemoglobin increased [Recovered/Resolved]
  - Weight increased [Recovered/Resolved]
  - Drug ineffective [Recovered/Resolved]
